FAERS Safety Report 9791761 (Version 1)
Quarter: 2014Q1

REPORT INFORMATION
  Report Type: Spontaneous
  Country: FR (occurrence: FR)
  Receive Date: 20140102
  Receipt Date: 20140102
  Transmission Date: 20141002
  Serious: Yes (Hospitalization)
  Sender: FDA-Public Use
  Company Number: FR-JNJFOC-20131214119

PATIENT
  Age: 49 Year
  Sex: Female

DRUGS (4)
  1. DUROGESIC [Suspect]
     Indication: PAIN
     Route: 062
     Dates: start: 20131118, end: 20131118
  2. TERCIAN [Concomitant]
     Indication: PRODUCT USED FOR UNKNOWN INDICATION
     Route: 065
  3. ATARAX [Concomitant]
     Indication: PRODUCT USED FOR UNKNOWN INDICATION
     Route: 065
  4. IMOVANE [Concomitant]
     Indication: PRODUCT USED FOR UNKNOWN INDICATION
     Route: 065

REACTIONS (3)
  - Coma [Recovered/Resolved]
  - Oxygen saturation decreased [Recovered/Resolved]
  - Miosis [Recovered/Resolved]
